FAERS Safety Report 9814952 (Version 1)
Quarter: 2014Q1

REPORT INFORMATION
  Report Type: Spontaneous
  Country: US (occurrence: US)
  Receive Date: 20140113
  Receipt Date: 20140113
  Transmission Date: 20141002
  Serious: No
  Sender: FDA-Public Use
  Company Number: US-009507513-1401USA003819

PATIENT
  Sex: Female

DRUGS (2)
  1. IMPLANON [Suspect]
     Route: 059
  2. OXCARBAZEPINE [Interacting]

REACTIONS (2)
  - Adverse event [Unknown]
  - Drug interaction [Unknown]
